FAERS Safety Report 21507620 (Version 13)
Quarter: 2025Q2

REPORT INFORMATION
  Report Type: Report from Study
  Country: US (occurrence: US)
  Receive Date: 20221026
  Receipt Date: 20250409
  Transmission Date: 20250716
  Serious: Yes (Other)
  Sender: TAKEDA
  Company Number: US-PAREXEL-2021-KAM-US003500

PATIENT
  Age: 49 Year
  Sex: Female
  Weight: 66 kg

DRUGS (35)
  1. GLASSIA [Suspect]
     Active Substance: .ALPHA.1-PROTEINASE INHIBITOR HUMAN
     Indication: Alpha-1 antitrypsin deficiency
     Dosage: 60 MILLIGRAM/KILOGRAM, 1/WEEK
     Dates: start: 20210212
  2. GLASSIA [Suspect]
     Active Substance: .ALPHA.1-PROTEINASE INHIBITOR HUMAN
     Dosage: 60 MILLIGRAM/KILOGRAM, Q2WEEKS
     Dates: end: 20240208
  3. GLASSIA [Suspect]
     Active Substance: .ALPHA.1-PROTEINASE INHIBITOR HUMAN
  4. GLASSIA [Suspect]
     Active Substance: .ALPHA.1-PROTEINASE INHIBITOR HUMAN
     Dosage: 60 MILLIGRAM/KILOGRAM, 1/WEEK
  5. DIPHENHYDRAMINE [Concomitant]
     Active Substance: DIPHENHYDRAMINE
  6. ZOCOR [Concomitant]
     Active Substance: SIMVASTATIN
  7. ATORVASTATIN CALCIUM [Concomitant]
     Active Substance: ATORVASTATIN CALCIUM
  8. EPINEPHRINE [Concomitant]
     Active Substance: EPINEPHRINE
  9. SODIUM CHLORIDE [Concomitant]
     Active Substance: SODIUM CHLORIDE
  10. BUDESONIDE\FORMOTEROL [Concomitant]
     Active Substance: BUDESONIDE\FORMOTEROL
  11. VITAMIN C [Concomitant]
     Active Substance: ASCORBIC ACID
  12. OMEPRAZOLE [Concomitant]
     Active Substance: OMEPRAZOLE
  13. HYDROCHLOROTHIAZIDE\TRIAMTERENE [Concomitant]
     Active Substance: HYDROCHLOROTHIAZIDE\TRIAMTERENE
  14. SINGULAIR [Concomitant]
     Active Substance: MONTELUKAST SODIUM
  15. OXYGEN [Concomitant]
     Active Substance: OXYGEN
  16. COREG [Concomitant]
     Active Substance: CARVEDILOL
  17. LEVOTHYROXINE [Concomitant]
     Active Substance: LEVOTHYROXINE
  18. ALBUTEROL SULFATE [Concomitant]
     Active Substance: ALBUTEROL SULFATE
  19. CLARINEX [Concomitant]
     Active Substance: DESLORATADINE
  20. DICYCLOMINE HYDROCHLORIDE [Concomitant]
     Active Substance: DICYCLOMINE HYDROCHLORIDE
  21. STOOL SOFTENER (DOCUSATE) [Concomitant]
     Active Substance: DOCUSATE
  22. Lmx [Concomitant]
  23. LOSARTAN [Concomitant]
     Active Substance: LOSARTAN
  24. VITAMIN D3 [Concomitant]
     Active Substance: CHOLECALCIFEROL
  25. ALEVE [Concomitant]
     Active Substance: NAPROXEN SODIUM
  26. CALCIUM\CHOLECALCIFEROL [Concomitant]
     Active Substance: CALCIUM\CHOLECALCIFEROL
  27. LOSARTAN POTASSIUM [Concomitant]
     Active Substance: LOSARTAN POTASSIUM
  28. PREDNISONE [Concomitant]
     Active Substance: PREDNISONE
  29. DOXYCYCLINE HYCLATE [Concomitant]
     Active Substance: DOXYCYCLINE HYCLATE
  30. LEVOTHYROXINE SODIUM [Concomitant]
     Active Substance: LEVOTHYROXINE SODIUM
  31. CALCIUM [Concomitant]
     Active Substance: CALCIUM
  32. DIPHENHYDRAMINE HYDROCHLORIDE [Concomitant]
     Active Substance: DIPHENHYDRAMINE HYDROCHLORIDE
  33. BUDESONIDE\FORMOTEROL FUMARATE [Concomitant]
     Active Substance: BUDESONIDE\FORMOTEROL FUMARATE
  34. SERTRALINE HYDROCHLORIDE [Concomitant]
     Active Substance: SERTRALINE HYDROCHLORIDE
  35. VITAMIN B [Concomitant]
     Active Substance: VITAMIN B

REACTIONS (40)
  - Anuria [Unknown]
  - Kidney infection [Unknown]
  - Paraesthesia [Recovered/Resolved]
  - Abdominal pain [Recovered/Resolved]
  - Influenza like illness [Unknown]
  - Oropharyngeal pain [Unknown]
  - Tenderness [Unknown]
  - Pain [Unknown]
  - Ear, nose and throat infection [Unknown]
  - Pyrexia [Unknown]
  - Feeling hot [Recovering/Resolving]
  - Anxiety [Unknown]
  - Palpitations [Unknown]
  - Mental status changes [Unknown]
  - Blood potassium decreased [Unknown]
  - Dehydration [Unknown]
  - Haematuria [Unknown]
  - Bladder pain [Unknown]
  - Joint range of motion decreased [Unknown]
  - Respiratory tract infection [Unknown]
  - Obstruction [Unknown]
  - Illness [Unknown]
  - Insurance issue [Unknown]
  - Incorrect dose administered [Unknown]
  - Inappropriate schedule of product administration [Unknown]
  - Extra dose administered [Unknown]
  - Product use issue [Unknown]
  - Laryngitis [Unknown]
  - Infection [Unknown]
  - Influenza [Unknown]
  - Decreased appetite [Unknown]
  - Abdominal distension [Unknown]
  - Vomiting [Recovering/Resolving]
  - Asthenia [Unknown]
  - Fatigue [Unknown]
  - Upper respiratory tract infection [Unknown]
  - Cough [Unknown]
  - Dizziness [Unknown]
  - Dyspnoea [Unknown]
  - Nausea [Unknown]

NARRATIVE: CASE EVENT DATE: 20220204
